FAERS Safety Report 9837884 (Version 2)
Quarter: 2014Q1

REPORT INFORMATION
  Report Type: Spontaneous
  Country: JP (occurrence: JP)
  Receive Date: 20140123
  Receipt Date: 20140131
  Transmission Date: 20141002
  Serious: Yes (Death)
  Sender: FDA-Public Use
  Company Number: JP-CELGENEUS-087-21660-14013114

PATIENT
  Age: 67 Year
  Sex: Male
  Weight: 67 kg

DRUGS (14)
  1. ABRAXANE [Suspect]
     Indication: LUNG NEOPLASM MALIGNANT
     Dosage: 180 MILLIGRAM
     Route: 041
     Dates: start: 20130812, end: 20131119
  2. CARBOPLATIN [Suspect]
     Indication: LUNG NEOPLASM MALIGNANT
     Dosage: 550 MILLIGRAM
     Route: 041
     Dates: start: 20130812, end: 20131105
  3. PLETAAL OD [Concomitant]
     Indication: PRODUCT USED FOR UNKNOWN INDICATION
     Dosage: 100 MILLIGRAM
     Route: 048
     Dates: start: 20130620, end: 20131209
  4. ALOSITOL [Concomitant]
     Indication: PRODUCT USED FOR UNKNOWN INDICATION
     Dosage: 200 MILLIGRAM
     Route: 048
     Dates: start: 20130620, end: 20131209
  5. BLOPRESS [Concomitant]
     Indication: PRODUCT USED FOR UNKNOWN INDICATION
     Dosage: 4 MILLIGRAM
     Route: 048
     Dates: start: 20130620, end: 20131209
  6. LYRICA [Concomitant]
     Indication: PRODUCT USED FOR UNKNOWN INDICATION
     Dosage: 150 MILLIGRAM
     Route: 048
     Dates: start: 20130910, end: 20131209
  7. DECADRON [Concomitant]
     Indication: PRODUCT USED FOR UNKNOWN INDICATION
     Dosage: 16.5 MILLIGRAM
     Route: 041
     Dates: start: 20130812, end: 20131119
  8. ALOXI [Concomitant]
     Indication: PRODUCT USED FOR UNKNOWN INDICATION
     Dosage: .75 MILLIGRAM
     Route: 041
     Dates: start: 20130812, end: 20131119
  9. OXYGEN [Concomitant]
     Indication: PRODUCT USED FOR UNKNOWN INDICATION
     Route: 055
     Dates: start: 20131213
  10. OXYGEN [Concomitant]
     Route: 055
     Dates: start: 20131217
  11. ENDOXAN [Concomitant]
     Indication: PRODUCT USED FOR UNKNOWN INDICATION
     Route: 065
     Dates: start: 20131213
  12. STEROID PULSE THERAPY WITH SOLU MEDROL [Concomitant]
     Indication: PRODUCT USED FOR UNKNOWN INDICATION
     Dosage: 1 GRAM
     Route: 065
     Dates: start: 20131218
  13. STEROID PULSE THERAPY WITH SOLU MEDROL [Concomitant]
     Dosage: 1 GRAM
     Route: 065
     Dates: start: 20131225
  14. MIDAZOLAM [Concomitant]
     Indication: PRODUCT USED FOR UNKNOWN INDICATION
     Route: 065
     Dates: start: 20131229

REACTIONS (1)
  - Interstitial lung disease [Fatal]
